FAERS Safety Report 5187082-7 (Version None)
Quarter: 2006Q4

REPORT INFORMATION
  Report Type: 
  Country: None (occurrence: None)
  Receive Date: 20061214
  Receipt Date: 20061204
  Transmission Date: 20070319
  Serious: Yes (Life-Threatening, Disabling, Other)
  Sender: FDA-Public Use
  Company Number: 2006097931

PATIENT
  Age: 35 Year
  Sex: Female
  Weight: 75 kg

DRUGS (8)
  1. LYRICA [Suspect]
     Indication: ARTHRALGIA
     Dosage: (150 MG, 3 IN 1 D), ORAL
     Route: 048
     Dates: start: 20050101, end: 20060907
  2. CELEBREX [Concomitant]
  3. SIMVASTATIN [Concomitant]
  4. PANTOZOL (PANTOPRAZOLE SODIUM) [Concomitant]
  5. JODTHYROX (LEVOTHYROXINE SODIUM, POTASSIUM IODIDE) [Concomitant]
  6. OXYGESTIC (OXYCODONE HYDRCHLORIDE) [Concomitant]
  7. AMITRIPTYLINE HCL [Concomitant]
  8. VALORON N (NALOXONE, TILIDINE) [Concomitant]

REACTIONS (3)
  - INJURY [None]
  - LYMPHANGIOMA [None]
  - TRISMUS [None]
